FAERS Safety Report 21688569 (Version 2)
Quarter: 2023Q2

REPORT INFORMATION
  Report Type: Report from Study
  Country: US (occurrence: US)
  Receive Date: 20221206
  Receipt Date: 20230417
  Transmission Date: 20230722
  Serious: No
  Sender: FDA-Public Use
  Company Number: US-002147023-NVSC2022US278334

PATIENT
  Sex: Female

DRUGS (1)
  1. KESIMPTA [Suspect]
     Active Substance: OFATUMUMAB
     Indication: Multiple sclerosis
     Dosage: 20 MG, QMO
     Route: 058
     Dates: start: 20221020

REACTIONS (10)
  - Chest pain [Recovered/Resolved]
  - Chest discomfort [Unknown]
  - Back pain [Unknown]
  - Fatigue [Unknown]
  - Flushing [Unknown]
  - Hot flush [Unknown]
  - Pyrexia [Unknown]
  - Hyperhidrosis [Unknown]
  - Feeling hot [Unknown]
  - Fatigue [Recovered/Resolved]
